FAERS Safety Report 7755796-8 (Version None)
Quarter: 2011Q3

REPORT INFORMATION
  Report Type: 
  Country: None (occurrence: None)
  Receive Date: 20110916
  Receipt Date: 20110907
  Transmission Date: 20111222
  Serious: Yes (Other)
  Sender: FDA-Public Use
  Company Number: US-JNJFOC-20110904229

PATIENT
  Age: 71 Year
  Sex: Female
  Weight: 61.24 kg

DRUGS (3)
  1. EXTRA STRENGTH TYLENOL [Suspect]
     Route: 048
  2. EXTRA STRENGTH TYLENOL [Suspect]
     Indication: PAIN
     Dosage: EVERY 4-6 HOURS
     Route: 048
     Dates: start: 20110610, end: 20110627
  3. CORGARD [Concomitant]
     Indication: HYPERTENSION
     Route: 065
     Dates: start: 20100101

REACTIONS (1)
  - LIVER INJURY [None]
